FAERS Safety Report 5161396-9 (Version None)
Quarter: 2006Q4

REPORT INFORMATION
  Report Type: 
  Country: None (occurrence: None)
  Receive Date: 20061130
  Receipt Date: 20061121
  Transmission Date: 20070319
  Serious: Yes (Other)
  Sender: FDA-Public Use
  Company Number: FR-ROCHE-472347

PATIENT
  Sex: Male

DRUGS (2)
  1. PEGASYS [Suspect]
     Indication: HEPATITIS C
     Route: 065
     Dates: end: 20061015
  2. RIBAVIRIN [Concomitant]
     Indication: HEPATITIS C
     Dates: end: 20061015

REACTIONS (1)
  - HYPOAESTHESIA [None]
